FAERS Safety Report 8581813-1 (Version None)
Quarter: 2012Q3

REPORT INFORMATION
  Report Type: 
  Country: None (occurrence: None)
  Receive Date: 20120809
  Receipt Date: 20120807
  Transmission Date: 20120928
  Serious: Yes (Other)
  Sender: FDA-Public Use
  Company Number: PHEH2012US010516

PATIENT
  Sex: Male

DRUGS (3)
  1. FAMPRIDINE [Concomitant]
     Indication: MULTIPLE SCLEROSIS
     Dosage: 10 MG, BID
     Route: 048
  2. GILENYA [Suspect]
     Indication: MULTIPLE SCLEROSIS
     Dosage: 0.5 MG, QD
     Route: 048
     Dates: start: 20120101, end: 20120501
  3. BACLOFEN [Concomitant]
     Indication: MULTIPLE SCLEROSIS
     Route: 048

REACTIONS (2)
  - CHEST PAIN [None]
  - OEDEMA PERIPHERAL [None]
